FAERS Safety Report 8960092 (Version 1)
Quarter: 2012Q4

REPORT INFORMATION
  Report Type: Report from Study
  Country: US (occurrence: US)
  Receive Date: 20121211
  Receipt Date: 20121211
  Transmission Date: 20130627
  Serious: Yes (Hospitalization, Disabling, Other)
  Sender: FDA-Public Use
  Company Number: US-GLAXOSMITHKLINE-A1004577A

PATIENT
  Age: 57 Year
  Sex: Male
  Weight: 98.2 kg

DRUGS (14)
  1. DYAZIDE [Suspect]
     Indication: PRODUCT USED FOR UNKNOWN INDICATION
  2. PEGINTERFERON ALFA-2A [Suspect]
     Indication: HEPATITIS C
     Dosage: 360UG Weekly
     Route: 058
     Dates: start: 20070507, end: 20070904
  3. RIBAVIRIN [Suspect]
     Indication: HEPATITIS C
     Dosage: 1400MG Per day
     Route: 048
     Dates: start: 20070507, end: 20070904
  4. ACIPHEX [Suspect]
     Indication: PRODUCT USED FOR UNKNOWN INDICATION
  5. PREDNISONE [Suspect]
     Indication: PRODUCT USED FOR UNKNOWN INDICATION
     Dosage: 80MG Per day
     Route: 048
     Dates: start: 20070831
  6. CYMBALTA [Concomitant]
  7. LAMICTAL [Concomitant]
  8. KEPPRA [Concomitant]
  9. SINGULAR [Concomitant]
  10. ALBUTEROL [Concomitant]
  11. MULTIVITAMIN [Concomitant]
  12. PRILOSEC [Concomitant]
  13. CELLCEPT [Concomitant]
  14. SEROQUEL [Concomitant]

REACTIONS (4)
  - Retinal detachment [Recovered/Resolved with Sequelae]
  - Metabolic encephalopathy [Unknown]
  - Gait disturbance [Recovered/Resolved]
  - Glaucoma [Recovering/Resolving]
